FAERS Safety Report 6998503-9 (Version None)
Quarter: 2010Q3

REPORT INFORMATION
  Report Type: 
  Country: None (occurrence: None)
  Receive Date: 20100920
  Receipt Date: 20091105
  Transmission Date: 20110219
  Serious: Yes (Other)
  Sender: FDA-Public Use
  Company Number: US-ASTRAZENECA-2009UW09373

PATIENT
  Age: 14165 Day
  Sex: Male
  Weight: 52.2 kg

DRUGS (6)
  1. SEROQUEL [Suspect]
     Indication: BIPOLAR DISORDER
     Route: 048
     Dates: start: 20040925, end: 20060401
  2. ABILIFY [Concomitant]
  3. GEODON [Concomitant]
  4. ZYPREXA [Concomitant]
  5. GABAPENTIN [Concomitant]
  6. PANTOPRAZOLE [Concomitant]

REACTIONS (1)
  - PANCREATITIS [None]
